FAERS Safety Report 24581258 (Version 1)
Quarter: 2024Q4

REPORT INFORMATION
  Report Type: Report from Study
  Country: CA (occurrence: CA)
  Receive Date: 20241105
  Receipt Date: 20241105
  Transmission Date: 20250114
  Serious: Yes (Other)
  Sender: TAIHO ONCOLOGY INC
  Company Number: CA-OTSUKA-2024_006974

PATIENT
  Age: 82 Year
  Sex: Male

DRUGS (1)
  1. INQOVI [Suspect]
     Active Substance: CEDAZURIDINE\DECITABINE
     Indication: Myelodysplastic syndrome
     Dosage: 1 DF (35 MG DECITABINE AND 100 MG CEDAZURIDINE), QOD (ON DAYS 1, 3, AND 5); 3 PILLS/CYCLE
     Route: 048
     Dates: start: 20240310

REACTIONS (5)
  - Cytopenia [Unknown]
  - Neutropenia [Unknown]
  - Thrombocytopenia [Unknown]
  - Inappropriate schedule of product administration [Unknown]
  - Anaemia [Unknown]

NARRATIVE: CASE EVENT DATE: 20240310
